FAERS Safety Report 8016879-0 (Version None)
Quarter: 2012Q1

REPORT INFORMATION
  Report Type: 
  Country: None (occurrence: None)
  Receive Date: 20120102
  Receipt Date: 20111220
  Transmission Date: 20120608
  Serious: Yes (Other)
  Sender: FDA-Public Use
  Company Number: PHHY2011TR111144

PATIENT
  Age: 50 Year
  Sex: Female

DRUGS (2)
  1. ATARAX [Concomitant]
  2. NEORAL [Suspect]
     Dosage: 200 MG, UNK
     Route: 048

REACTIONS (6)
  - VOMITING [None]
  - LOSS OF CONSCIOUSNESS [None]
  - NAUSEA [None]
  - ANGIOEDEMA [None]
  - ABDOMINAL PAIN UPPER [None]
  - HEADACHE [None]
